FAERS Safety Report 9198778 (Version 2)
Quarter: 2013Q3

REPORT INFORMATION
  Report Type: Spontaneous
  Country: FR (occurrence: FR)
  Receive Date: 20130329
  Receipt Date: 20130723
  Transmission Date: 20140515
  Serious: Yes (Other)
  Sender: FDA-Public Use
  Company Number: FR-PFIZER INC-2013094598

PATIENT
  Age: 60 Year
  Sex: Female

DRUGS (1)
  1. SALAZOPYRINE [Suspect]
     Dosage: UNK

REACTIONS (1)
  - Arthropathy [Unknown]
